FAERS Safety Report 8354746-3 (Version None)
Quarter: 2012Q2

REPORT INFORMATION
  Report Type: 
  Country: None (occurrence: None)
  Receive Date: 20120511
  Receipt Date: 20120502
  Transmission Date: 20120825
  Serious: Yes (Hospitalization)
  Sender: FDA-Public Use
  Company Number: FR-GLAXOSMITHKLINE-B0794288A

PATIENT
  Sex: Female
  Weight: 115 kg

DRUGS (18)
  1. ASPIRIN [Suspect]
     Indication: PRODUCT USED FOR UNKNOWN INDICATION
     Route: 048
     Dates: end: 20120205
  2. PAROXETINE [Concomitant]
  3. ATARAX [Concomitant]
  4. DIAMICRON [Concomitant]
  5. ACETAMINOPHEN [Concomitant]
  6. PIASCLEDINE [Concomitant]
  7. ACETAMINOPHEN [Concomitant]
  8. BECLOMETHASONE DIPROPIONATE + FORMOTEROL [Concomitant]
  9. ARIXTRA [Suspect]
     Indication: DEEP VEIN THROMBOSIS
     Dosage: 7.5MG PER DAY
     Dates: start: 20120201, end: 20120205
  10. FENOFIBRATE [Concomitant]
  11. METFORMIN HCL [Concomitant]
  12. BROMAZEPAM [Concomitant]
  13. MOVIPREP [Concomitant]
  14. ZOPICLONE [Concomitant]
  15. NEXIUM [Concomitant]
  16. LEVEMIR [Concomitant]
  17. INDAPAMIDE [Concomitant]
  18. OXYGEN THERAPY [Concomitant]

REACTIONS (4)
  - HAEMATOMA [None]
  - OEDEMA PERIPHERAL [None]
  - INJECTION SITE HAEMATOMA [None]
  - OFF LABEL USE [None]
